FAERS Safety Report 14200882 (Version 1)
Quarter: 2017Q4

REPORT INFORMATION
  Report Type: Spontaneous
  Country: US (occurrence: US)
  Receive Date: 20171117
  Receipt Date: 20171117
  Transmission Date: 20180321
  Serious: Yes (Hospitalization)
  Sender: FDA-Public Use
  Company Number: US-NOVOPROD-553727

PATIENT
  Age: 78 Year
  Sex: Male

DRUGS (3)
  1. NOVOLOG [Suspect]
     Active Substance: INSULIN ASPART
     Dosage: 5 U, QD BEFORE LUNCH
     Route: 058
     Dates: start: 20170624
  2. NOVOLOG [Suspect]
     Active Substance: INSULIN ASPART
     Dosage: 2-4 U, QD BEFORE DINNER
     Route: 058
     Dates: start: 20170624
  3. NOVOLOG [Suspect]
     Active Substance: INSULIN ASPART
     Indication: TYPE 1 DIABETES MELLITUS
     Dosage: 14 U, QD BEFORE BREAKFAST
     Route: 058
     Dates: start: 20170624

REACTIONS (2)
  - Product quality issue [Recovered/Resolved]
  - Blood glucose increased [Recovered/Resolved]

NARRATIVE: CASE EVENT DATE: 20170624
